FAERS Safety Report 4437701-5 (Version None)
Quarter: 2004Q3

REPORT INFORMATION
  Report Type: 
  Country: None (occurrence: None)
  Receive Date: 20040831
  Receipt Date: 20031106
  Transmission Date: 20050211
  Serious: No
  Sender: FDA-Public Use
  Company Number: US-GLAXOSMITHKLINE-A0433297A

PATIENT
  Sex: Male

DRUGS (2)
  1. ZOVIRAX [Suspect]
     Indication: HERPES SIMPLEX
     Dosage: 400MG THREE TIMES PER DAY
     Route: 048
     Dates: start: 20031103
  2. LYSINE [Concomitant]

REACTIONS (1)
  - ILL-DEFINED DISORDER [None]
